FAERS Safety Report 5647567-3 (Version None)
Quarter: 2008Q1

REPORT INFORMATION
  Report Type: 
  Country: None (occurrence: None)
  Receive Date: 20080131
  Receipt Date: 20071220
  Transmission Date: 20080703
  Serious: No
  Sender: FDA-Public Use
  Company Number: 163-21880-07121227

PATIENT
  Age: 87 Year
  Sex: Female

DRUGS (2)
  1. REVLIMID [Suspect]
     Indication: MYELODYSPLASTIC SYNDROME
     Dosage: 5 MG, ONCE DAILY FOR 28 DAYS, ORAL; 10 MG, 1 IN1 D, ORAL
     Route: 048
     Dates: start: 20070514, end: 20070701
  2. REVLIMID [Suspect]
     Indication: MYELODYSPLASTIC SYNDROME
     Dosage: 5 MG, ONCE DAILY FOR 28 DAYS, ORAL; 10 MG, 1 IN1 D, ORAL
     Route: 048
     Dates: start: 20071003, end: 20071201

REACTIONS (1)
  - NECK PAIN [None]
